FAERS Safety Report 6522245-7 (Version None)
Quarter: 2009Q4

REPORT INFORMATION
  Report Type: 
  Country: None (occurrence: None)
  Receive Date: 20091230
  Receipt Date: 20091222
  Transmission Date: 20100525
  Serious: Yes (Other)
  Sender: FDA-Public Use
  Company Number: US-JNJFOC-20091007709

PATIENT
  Age: 35 Year
  Sex: Female
  Weight: 61.24 kg

DRUGS (2)
  1. MOTRIN IB [Suspect]
     Indication: SCIATICA
     Dosage: EVERY 4- 6 HOURS
     Route: 048
  2. MOTRIN IB [Suspect]
     Indication: MUSCLE SPASMS
     Dosage: EVERY 4- 6 HOURS
     Route: 048

REACTIONS (3)
  - BRAIN OEDEMA [None]
  - INCORRECT DOSE ADMINISTERED [None]
  - SKIN WARM [None]
